FAERS Safety Report 6262225-2 (Version None)
Quarter: 2009Q3

REPORT INFORMATION
  Report Type: 
  Country: None (occurrence: None)
  Receive Date: 20090709
  Receipt Date: 20090707
  Transmission Date: 20100115
  Serious: Yes (Hospitalization, Disabling)
  Sender: FDA-Public Use
  Company Number: GB-BIOGENIDEC-2009BI020080

PATIENT
  Age: 54 Year
  Sex: Male
  Weight: 82 kg

DRUGS (12)
  1. NATALIZUMAB [Suspect]
     Indication: MULTIPLE SCLEROSIS
     Route: 042
     Dates: start: 20070212, end: 20090630
  2. ATORVASTATIN CALCIUM [Concomitant]
  3. CLONAZEPAM [Concomitant]
  4. GABAPENTIN [Concomitant]
  5. TOLTERODINE TARTRATE [Concomitant]
  6. GLICLAZIDE [Concomitant]
  7. FERROUS SULFATE TAB [Concomitant]
  8. ASPIRIN [Concomitant]
  9. LANSOPRAZOLE [Concomitant]
  10. PAROXETINE HCL [Concomitant]
  11. METFORMIN HCL [Concomitant]
  12. ENSURE PLUS [Concomitant]

REACTIONS (1)
  - TRANSIENT ISCHAEMIC ATTACK [None]
